FAERS Safety Report 17253945 (Version 2)
Quarter: 2020Q1

REPORT INFORMATION
  Report Type: Spontaneous
  Country: DE (occurrence: DE)
  Receive Date: 20200109
  Receipt Date: 20200211
  Transmission Date: 20200409
  Serious: Yes (Hospitalization, Other)
  Sender: FDA-Public Use
  Company Number: DE-GILEAD-2020-0445786

PATIENT
  Age: 3 Decade
  Sex: Male

DRUGS (6)
  1. COTRIMOXAZOLE [Concomitant]
     Active Substance: SULFAMETHOXAZOLE\TRIMETHOPRIM
  2. CYCLOPHOSPHAMIDE. [Concomitant]
     Active Substance: CYCLOPHOSPHAMIDE
     Indication: BONE MARROW CONDITIONING REGIMEN
     Dosage: UNK
     Dates: start: 20190116, end: 20190118
  3. ACICLOVIR [Concomitant]
     Active Substance: ACYCLOVIR
  4. FLUDARABINE [Concomitant]
     Active Substance: FLUDARABINE PHOSPHATE
     Indication: BONE MARROW CONDITIONING REGIMEN
     Dosage: UNK
     Dates: start: 20190116, end: 20190118
  5. YESCARTA [Suspect]
     Active Substance: AXICABTAGENE CILOLEUCEL
     Indication: DIFFUSE LARGE B-CELL LYMPHOMA
     Dosage: 1 UNK
     Route: 065
     Dates: start: 20190121, end: 20190121
  6. METHOTREXATE. [Concomitant]
     Active Substance: METHOTREXATE
     Indication: DIFFUSE LARGE B-CELL LYMPHOMA
     Dosage: UNK; HIGH DOSE
     Dates: start: 20181219, end: 20181219

REACTIONS (5)
  - Cytokine release syndrome [Recovering/Resolving]
  - Disease progression [Unknown]
  - Cystitis haemorrhagic [Recovering/Resolving]
  - Neurotoxicity [Recovering/Resolving]
  - Acute abdomen [Recovering/Resolving]

NARRATIVE: CASE EVENT DATE: 20190126
